FAERS Safety Report 5055468-7 (Version None)
Quarter: 2006Q3

REPORT INFORMATION
  Report Type: 
  Country: None (occurrence: None)
  Receive Date: 20060714
  Receipt Date: 20060617
  Transmission Date: 20061208
  Serious: Yes (Death)
  Sender: FDA-Public Use
  Company Number: 2006-168

PATIENT
  Age: 23 Year
  Sex: Female

DRUGS (2)
  1. DAPSONE, PRESUMABLY 25MG, PRESUMED JACOBUS [Suspect]
     Indication: FOLLICULAR MUCINOSIS
     Dosage: 50 MG 3X/D ORALLY
     Route: 048
     Dates: start: 20040123, end: 20040126
  2. . [Concomitant]

REACTIONS (3)
  - LIVER FUNCTION TEST ABNORMAL [None]
  - LIVER TRANSPLANT [None]
  - PYREXIA [None]
